FAERS Safety Report 6894308-8 (Version None)
Quarter: 2010Q3

REPORT INFORMATION
  Report Type: 
  Country: None (occurrence: None)
  Receive Date: 20100708
  Receipt Date: 20090922
  Transmission Date: 20110219
  Serious: Yes (Other)
  Sender: FDA-Public Use
  Company Number: 2009272736

PATIENT
  Age: 70 Year
  Sex: Female
  Weight: 64.9 kg

DRUGS (1)
  1. CHANTIX [Suspect]

REACTIONS (1)
  - HALLUCINATION [None]
